FAERS Safety Report 4284520-9 (Version None)
Quarter: 2004Q1

REPORT INFORMATION
  Report Type: 
  Country: None (occurrence: None)
  Receive Date: 20040130
  Receipt Date: 20040109
  Transmission Date: 20041129
  Serious: Yes (Hospitalization)
  Sender: FDA-Public Use
  Company Number: DSA_23907_2004

PATIENT
  Age: 53 Year
  Sex: Female

DRUGS (5)
  1. DILTIAZEM HYDROCHLORIDE [Suspect]
     Dosage: 200 MG Q DAY PO
     Route: 048
  2. REMICADE [Suspect]
     Indication: POLYARTHRITIS
     Dosage: 3 MG/KG Q DAY IV
     Route: 042
     Dates: start: 20030107
  3. CORTANCYL [Suspect]
     Indication: POLYARTHRITIS
     Dosage: 5 MG QD PO
     Route: 048
  4. SPECIAFOLDINE [Suspect]
     Dosage: 5 MG Q DAY
  5. NOVATREX [Suspect]
     Dosage: 2.5 MG 4XWK

REACTIONS (2)
  - DISEASE RECURRENCE [None]
  - PERIPHERAL ISCHAEMIA [None]
